FAERS Safety Report 9548257 (Version 1)
Quarter: 2013Q3

REPORT INFORMATION
  Report Type: Report from Study
  Country: US (occurrence: US)
  Receive Date: 20130924
  Receipt Date: 20130924
  Transmission Date: 20140515
  Serious: Yes (Hospitalization, Other)
  Sender: FDA-Public Use
  Company Number: US-JNJFOC-20130909041

PATIENT
  Sex: Female
  Weight: 53.52 kg

DRUGS (9)
  1. REMICADE [Suspect]
     Indication: CROHN^S DISEASE
     Route: 042
     Dates: start: 201304
  2. REMICADE [Suspect]
     Indication: CROHN^S DISEASE
     Route: 042
     Dates: start: 2012, end: 201304
  3. REMICADE [Suspect]
     Indication: CROHN^S DISEASE
     Route: 042
     Dates: start: 2006, end: 2012
  4. DILAUDID [Concomitant]
     Indication: PAIN
     Route: 065
  5. VITAMIN D [Concomitant]
     Indication: HYPOVITAMINOSIS
     Route: 065
     Dates: start: 2010
  6. NEXIUM [Concomitant]
     Indication: GASTROOESOPHAGEAL REFLUX DISEASE
     Route: 065
  7. FOLIC ACID [Concomitant]
     Route: 048
     Dates: start: 2010
  8. VITAMIN B 12 [Concomitant]
     Indication: ANAEMIA
     Route: 065
     Dates: start: 2010
  9. COMPAZINE [Concomitant]
     Route: 048

REACTIONS (5)
  - Anal fistula [Not Recovered/Not Resolved]
  - Vasculitis [Not Recovered/Not Resolved]
  - Psoriasis [Not Recovered/Not Resolved]
  - Arthralgia [Not Recovered/Not Resolved]
  - Protein total abnormal [Unknown]
